FAERS Safety Report 19653347 (Version 1)
Quarter: 2021Q3

REPORT INFORMATION
  Report Type: Report from Study
  Country: CO (occurrence: CO)
  Receive Date: 20210803
  Receipt Date: 20210803
  Transmission Date: 20211014
  Serious: Yes (Other)
  Sender: FDA-Public Use
  Company Number: NVSC2021CO152176

PATIENT
  Sex: Female
  Weight: 58 kg

DRUGS (3)
  1. METHOTREXATE. [Concomitant]
     Active Substance: METHOTREXATE
     Indication: ANKYLOSING SPONDYLITIS
     Dosage: 2.5 MG (THREE ON SATURDAY AND THREE ON SUNDAY)
     Route: 048
     Dates: start: 2012
  2. ACETAMINOPHEN. [Concomitant]
     Active Substance: ACETAMINOPHEN
     Indication: PAIN
     Dosage: 500 MG, QD
     Route: 048
     Dates: start: 2012
  3. COSENTYX [Suspect]
     Active Substance: SECUKINUMAB
     Indication: ANKYLOSING SPONDYLITIS
     Dosage: 150 MG, QMO (STARTED 3 YEARS AGO)
     Route: 058
     Dates: end: 202101

REACTIONS (3)
  - Arthralgia [Unknown]
  - Joint injury [Unknown]
  - Mobility decreased [Recovering/Resolving]
